FAERS Safety Report 17453795 (Version 1)
Quarter: 2020Q1

REPORT INFORMATION
  Report Type: Spontaneous
  Country: US (occurrence: US)
  Receive Date: 20200224
  Receipt Date: 20200224
  Transmission Date: 20200409
  Serious: No
  Sender: FDA-Public Use
  Company Number: US-TEIKOKU PHARMA USA-TPU2020-00078

PATIENT
  Age: 69 Year
  Sex: Female
  Weight: 55.84 kg

DRUGS (2)
  1. LIDOCAINE PATCH [Suspect]
     Active Substance: LIDOCAINE
     Indication: BACK PAIN
     Route: 061
  2. LIDODERM [Suspect]
     Active Substance: LIDOCAINE
     Indication: BACK PAIN
     Route: 061
     Dates: start: 1990

REACTIONS (3)
  - Application site rash [Recovered/Resolved]
  - Intentional underdose [Unknown]
  - Abscess [Unknown]

NARRATIVE: CASE EVENT DATE: 202002
